FAERS Safety Report 25625176 (Version 1)
Quarter: 2025Q3

REPORT INFORMATION
  Report Type: Report from Study
  Country: CA (occurrence: CA)
  Receive Date: 20250731
  Receipt Date: 20250731
  Transmission Date: 20251020
  Serious: Yes (Other)
  Sender: ROCHE
  Company Number: CA-002147023-NVSC2024CA017271

PATIENT
  Age: 15 Year
  Sex: Female

DRUGS (1)
  1. XOLAIR [Suspect]
     Active Substance: OMALIZUMAB
     Indication: Asthma
     Route: 058
     Dates: start: 20240122

REACTIONS (10)
  - Syncope [Unknown]
  - Loss of consciousness [Unknown]
  - Cold sweat [Unknown]
  - Dyskinesia [Unknown]
  - Yawning [Unknown]
  - Asthma [Unknown]
  - Wheezing [Unknown]
  - Throat clearing [Unknown]
  - Frustration tolerance decreased [Unknown]
  - Weight decreased [Unknown]

NARRATIVE: CASE EVENT DATE: 20240122
